FAERS Safety Report 9634746 (Version 4)
Quarter: 2013Q4

REPORT INFORMATION
  Report Type: Spontaneous
  Country: US (occurrence: US)
  Receive Date: 20131021
  Receipt Date: 20131125
  Transmission Date: 20140711
  Serious: Yes (Disabling)
  Sender: FDA-Public Use
  Company Number: US-EISAI INC-AP356-00090-SPO-US

PATIENT
  Sex: Female

DRUGS (8)
  1. BELVIQ (LORCASERIN HYDROCHLORIDE) [Suspect]
     Indication: PRODUCT USED FOR UNKNOWN INDICATION
     Route: 048
     Dates: start: 201308, end: 20130913
  2. BELVIQ (LORCASERIN HYDROCHLORIDE) [Suspect]
     Route: 048
     Dates: start: 20131122
  3. PROAIR HFA [Suspect]
     Indication: ASTHMA
     Route: 055
     Dates: end: 20130913
  4. DULERA [Suspect]
     Indication: ASTHMA
     Dosage: 200 MCG/5 MCG
     Route: 055
     Dates: end: 20130913
  5. OXYBUTYNIN CHLORIDE [Suspect]
     Indication: BLADDER DISORDER
     Route: 048
     Dates: end: 20130913
  6. SIMVASTATIN [Suspect]
     Indication: HYPERTENSION
     Route: 048
     Dates: end: 20130913
  7. KLOR-CON 8 [Suspect]
     Indication: PRODUCT USED FOR UNKNOWN INDICATION
     Route: 048
     Dates: end: 20130913
  8. OMEPRAZOLE [Suspect]
     Indication: GASTROOESOPHAGEAL REFLUX DISEASE
     Route: 048
     Dates: end: 20130913

REACTIONS (2)
  - Hypersensitivity [Recovered/Resolved]
  - Headache [Not Recovered/Not Resolved]
